FAERS Safety Report 25324972 (Version 1)
Quarter: 2025Q2

REPORT INFORMATION
  Report Type: Spontaneous
  Country: US (occurrence: US)
  Receive Date: 20250516
  Receipt Date: 20250516
  Transmission Date: 20250717
  Serious: No
  Sender: XERIS PHARMACEUTICALS
  Company Number: US-BRIAN CONNER SVP QUALITY AND CHIEF COMPLIANCE OFFICER-2025XER00279

PATIENT
  Age: 62 Year
  Sex: Female
  Weight: 79.379 kg

DRUGS (2)
  1. GVOKE [Suspect]
     Active Substance: GLUCAGON
     Indication: Hypoglycaemia
     Dates: start: 20250420, end: 20250420
  2. GVOKE [Suspect]
     Active Substance: GLUCAGON
     Indication: Type 1 diabetes mellitus

REACTIONS (2)
  - Product packaging quantity issue [Recovered/Resolved]
  - No adverse event [Recovered/Resolved]

NARRATIVE: CASE EVENT DATE: 20250420
